FAERS Safety Report 5884124-8 (Version None)
Quarter: 2008Q3

REPORT INFORMATION
  Report Type: 
  Country: None (occurrence: None)
  Receive Date: 20080915
  Receipt Date: 20080902
  Transmission Date: 20090109
  Serious: Yes (Hospitalization)
  Sender: FDA-Public Use
  Company Number: PHEH1996US09422

PATIENT
  Sex: Male
  Weight: 73 kg

DRUGS (10)
  1. SANDIMMUNE [Suspect]
     Route: 048
     Dates: start: 19960226
  2. ZOVIRAX [Concomitant]
  3. IMURAN [Concomitant]
  4. LASIX [Concomitant]
  5. GLIPIZIDE [Concomitant]
  6. AXID [Concomitant]
  7. NYSTATIN [Concomitant]
  8. PREDNISONE TAB [Concomitant]
  9. HYTRIN [Concomitant]
  10. FERROUS SULFATE TAB [Concomitant]

REACTIONS (2)
  - BLOOD CREATININE INCREASED [None]
  - PERICARDIAL EFFUSION [None]
